FAERS Safety Report 9327671 (Version 2)
Quarter: 2013Q3

REPORT INFORMATION
  Report Type: Spontaneous
  Country: US (occurrence: US)
  Receive Date: 20130604
  Receipt Date: 20130807
  Transmission Date: 20140515
  Serious: No
  Sender: FDA-Public Use
  Company Number: US-AMGEN-USASP2013039109

PATIENT
  Age: 42 Year
  Sex: Female

DRUGS (5)
  1. ENBREL [Suspect]
     Indication: RHEUMATOID ARTHRITIS
     Dosage: 50 MG, QWK
     Route: 065
     Dates: start: 20130501
  2. ENBREL [Suspect]
  3. METHOTREXATE [Concomitant]
     Dosage: 20 MG, QWK
     Route: 048
  4. METHOTREXATE [Concomitant]
  5. METHOTREXATE [Concomitant]

REACTIONS (9)
  - Arthralgia [Not Recovered/Not Resolved]
  - Insomnia [Recovered/Resolved]
  - Pain in extremity [Not Recovered/Not Resolved]
  - Feeling hot [Not Recovered/Not Resolved]
  - Activities of daily living impaired [Not Recovered/Not Resolved]
  - Skin swelling [Recovering/Resolving]
  - Joint crepitation [Not Recovered/Not Resolved]
  - Injection site haemorrhage [Recovered/Resolved]
  - Injection site pain [Not Recovered/Not Resolved]
